FAERS Safety Report 5195932-3 (Version None)
Quarter: 2006Q4

REPORT INFORMATION
  Report Type: 
  Country: None (occurrence: None)
  Receive Date: 20061227
  Receipt Date: 20061227
  Transmission Date: 20070319
  Serious: Yes (Other)
  Sender: FDA-Public Use
  Company Number: None

PATIENT
  Age: 29 Year
  Sex: Male
  Weight: 79.3795 kg

DRUGS (2)
  1. CYMBALTA [Suspect]
     Dosage: 60 MG DAILY PO
     Route: 048
     Dates: start: 20060401, end: 20061031
  2. CYMBALTA [Suspect]
     Dosage: 20 MG DAILY PO
     Route: 048
     Dates: start: 20061215, end: 20061226

REACTIONS (12)
  - AKATHISIA [None]
  - ANOREXIA [None]
  - BLOOD PRESSURE INCREASED [None]
  - DEPERSONALISATION [None]
  - DRUG WITHDRAWAL SYNDROME [None]
  - DYSPHORIA [None]
  - FATIGUE [None]
  - HEART RATE INCREASED [None]
  - ORTHOSTATIC INTOLERANCE [None]
  - PARAESTHESIA [None]
  - VERTIGO [None]
  - WEIGHT INCREASED [None]
